FAERS Safety Report 19120505 (Version 1)
Quarter: 2021Q2

REPORT INFORMATION
  Report Type: Spontaneous
  Country: US (occurrence: US)
  Receive Date: 20210410
  Receipt Date: 20210410
  Transmission Date: 20210717
  Serious: Yes (Other)
  Sender: FDA-Public Use
  Company Number: None

PATIENT
  Age: 49 Year
  Sex: Female
  Weight: 75.6 kg

DRUGS (15)
  1. LOSARTAN. [Concomitant]
     Active Substance: LOSARTAN
  2. HYDROCHLORATHIAZIDE [Concomitant]
     Active Substance: HYDROCHLOROTHIAZIDE
  3. BLOOD SUGAR MONITOR [Concomitant]
  4. ZINC LOZENGES [Concomitant]
  5. HOT TEA W/HONEY [Concomitant]
  6. SYNTHROID [Concomitant]
     Active Substance: LEVOTHYROXINE SODIUM
  7. BLOOD PRESSURE EQUIPMENT [Concomitant]
  8. CPAP [Concomitant]
     Active Substance: DEVICE
  9. PROBIOTIC [Concomitant]
     Active Substance: PROBIOTICS NOS
  10. BAMLANIVIMAB/ETESEVIMAB [Suspect]
     Active Substance: BAMLANIVIMAB\ETESEVIMAB
     Indication: COVID-19
     Dosage: ?          QUANTITY:1 IV BAG;OTHER FREQUENCY:ONCE;?
     Route: 042
     Dates: start: 20210406, end: 20210406
  11. MAGNESIUM [Concomitant]
     Active Substance: MAGNESIUM
  12. METOPROLOL. [Concomitant]
     Active Substance: METOPROLOL
  13. JANUVIA [Concomitant]
     Active Substance: SITAGLIPTIN PHOSPHATE
  14. VITAMIN C [Concomitant]
     Active Substance: ASCORBIC ACID
  15. VIT D [Concomitant]
     Active Substance: VITAMIN D NOS

REACTIONS (2)
  - Swelling face [None]
  - Nasopharyngitis [None]

NARRATIVE: CASE EVENT DATE: 20210407
